FAERS Safety Report 12917089 (Version 3)
Quarter: 2016Q4

REPORT INFORMATION
  Report Type: Spontaneous
  Country: US (occurrence: US)
  Receive Date: 20161107
  Receipt Date: 20161227
  Transmission Date: 20170207
  Serious: Yes (Life-Threatening, Hospitalization, Disabling, Other)
  Sender: FDA-Public Use
  Company Number: US-BAXALTA-2016BLT008025

PATIENT
  Age: 58 Year
  Sex: Male
  Weight: 141 kg

DRUGS (7)
  1. LISINOPRIL. [Suspect]
     Active Substance: LISINOPRIL
     Indication: HYPERTENSION
     Dosage: 20 MG, 1X A DAY
     Route: 048
     Dates: end: 20150213
  2. FEIBA [Suspect]
     Active Substance: ANTI-INHIBITOR COAGULANT COMPLEX
     Indication: HEPATIC HAEMATOMA
     Dosage: 14150 U, ONCE
     Route: 042
     Dates: start: 20150212
  3. FISH OIL [Concomitant]
     Active Substance: FISH OIL
     Indication: PRODUCT USED FOR UNKNOWN INDICATION
     Dosage: UNK, 1X A DAY; 1 CAPSULE
     Route: 048
  4. WARFARIN [Suspect]
     Active Substance: WARFARIN
     Indication: DEEP VEIN THROMBOSIS
     Dosage: 5 MG, 1X A DAY EVERY EXCEPT TUES. + THURS.
     Route: 048
     Dates: start: 201501, end: 20150212
  5. VITAMIN C [Concomitant]
     Active Substance: ASCORBIC ACID
     Indication: SUPPLEMENTATION THERAPY
     Dosage: 500 MG, 1X A DAY
     Route: 048
  6. FEIBA [Suspect]
     Active Substance: ANTI-INHIBITOR COAGULANT COMPLEX
     Indication: OFF LABEL USE
  7. WARFARIN [Suspect]
     Active Substance: WARFARIN
     Dosage: 7.5 MG, 1X A DAY EVERY TUES. + THURS.
     Route: 048
     Dates: start: 201501, end: 20150212

REACTIONS (4)
  - General physical health deterioration [Recovered/Resolved]
  - Renal failure [Not Recovered/Not Resolved]
  - Microangiopathic haemolytic anaemia [Recovered/Resolved]
  - Haemolytic uraemic syndrome [Recovered/Resolved]

NARRATIVE: CASE EVENT DATE: 20150212
